FAERS Safety Report 24448967 (Version 1)
Quarter: 2024Q4

REPORT INFORMATION
  Report Type: Spontaneous
  Country: US (occurrence: US)
  Receive Date: 20241017
  Receipt Date: 20241017
  Transmission Date: 20250115
  Serious: No
  Sender: ROCHE
  Company Number: US-ROCHE-10000101531

PATIENT
  Age: 14 Year
  Sex: Female
  Weight: 95.25 kg

DRUGS (4)
  1. ACTEMRA [Suspect]
     Active Substance: TOCILIZUMAB
     Indication: Uveitis
     Route: 058
     Dates: start: 20241003
  2. LEUCOVORIN [Concomitant]
     Active Substance: LEUCOVORIN\LEUCOVORIN CALCIUM
     Route: 048
  3. PREDNISOLONE [Concomitant]
     Active Substance: PREDNISOLONE
     Indication: Inflammation
     Route: 047
  4. OTREXUP [Concomitant]
     Active Substance: METHOTREXATE
     Indication: Uveitis
     Route: 065

REACTIONS (6)
  - Off label use [Unknown]
  - Injection site haemorrhage [Unknown]
  - Product complaint [Unknown]
  - Wrong technique in device usage process [Unknown]
  - Product complaint [Unknown]
  - Product communication issue [Unknown]

NARRATIVE: CASE EVENT DATE: 20241003
